FAERS Safety Report 9692936 (Version 1)
Quarter: 2013Q4

REPORT INFORMATION
  Report Type: Spontaneous
  Country: US (occurrence: US)
  Receive Date: 20131118
  Receipt Date: 20131118
  Transmission Date: 20140711
  Serious: No
  Sender: FDA-Public Use
  Company Number: US-GLAXOSMITHKLINE-A1021666A

PATIENT
  Age: 53 Year
  Sex: Male

DRUGS (6)
  1. COREG CR [Suspect]
     Indication: HYPERTENSION
     Dosage: 40MG PER DAY
     Route: 048
     Dates: start: 20130425
  2. NORVASC [Concomitant]
  3. FLEXERIL [Concomitant]
  4. HYDROCHLOROTHIAZIDE [Concomitant]
  5. CLONIDINE [Concomitant]
  6. INHALERS [Concomitant]

REACTIONS (1)
  - Lip swelling [Unknown]
